FAERS Safety Report 6738461-5 (Version None)
Quarter: 2010Q2

REPORT INFORMATION
  Report Type: 
  Country: None (occurrence: None)
  Receive Date: 20100524
  Receipt Date: 20100511
  Transmission Date: 20101027
  Serious: Yes (Other)
  Sender: FDA-Public Use
  Company Number: PHHY2010DE30320

PATIENT
  Sex: Female
  Weight: 70 kg

DRUGS (1)
  1. CGS 20267 T30748+ [Suspect]
     Indication: BREAST CANCER
     Dosage: 2.5 MG, DAILY
     Route: 048
     Dates: start: 20091015

REACTIONS (3)
  - DEAFNESS UNILATERAL [None]
  - STRESS URINARY INCONTINENCE [None]
  - VISUAL ACUITY REDUCED [None]
